FAERS Safety Report 5042978-1 (Version None)
Quarter: 2006Q2

REPORT INFORMATION
  Report Type: 
  Country: None (occurrence: None)
  Receive Date: 20060627
  Receipt Date: 20060613
  Transmission Date: 20061013
  Serious: Yes (Death)
  Sender: FDA-Public Use
  Company Number: 2006074497

PATIENT
  Age: 37 Year
  Sex: Male

DRUGS (6)
  1. ADRIBLASTINE (DOXORUBICINE HYDROCHLORIDE) [Suspect]
     Indication: MULTIPLE MYELOMA
     Dosage: 50 MG/25 ML, INTRAVENOUS
     Route: 042
     Dates: start: 20060215, end: 20060418
  2. DEXAMETHASONE SODIUM PHOSPHATE [Concomitant]
  3. CIPROFLOXACIN HCL [Concomitant]
  4. CEFTAZIDIME PENTAHYDRATE [Concomitant]
  5. AUGMENTIN '125' [Concomitant]
  6. ARANESP [Concomitant]

REACTIONS (2)
  - AGRANULOCYTOSIS [None]
  - SUDDEN DEATH [None]
